FAERS Safety Report 23520592 (Version 1)
Quarter: 2024Q1

REPORT INFORMATION
  Report Type: Spontaneous
  Country: US (occurrence: US)
  Receive Date: 20240214
  Receipt Date: 20240214
  Transmission Date: 20240410
  Serious: Yes (Life-Threatening, Hospitalization, Other)
  Sender: FDA-Public Use
  Company Number: US-DRL-USA-LIT/USA/24/0002330

PATIENT
  Age: 12 Year
  Sex: Female
  Weight: 63 kg

DRUGS (1)
  1. AMLODIPINE [Suspect]
     Active Substance: AMLODIPINE BESYLATE
     Indication: Product used for unknown indication
     Dosage: INGESTED AMLODIPINE 300 MG
     Route: 048

REACTIONS (5)
  - Multiple organ dysfunction syndrome [Recovering/Resolving]
  - Distributive shock [Recovering/Resolving]
  - Acute respiratory distress syndrome [Recovering/Resolving]
  - Renal failure [Recovering/Resolving]
  - Intentional overdose [Unknown]
